FAERS Safety Report 20844272 (Version 2)
Quarter: 2022Q2

REPORT INFORMATION
  Report Type: Spontaneous
  Country: CA (occurrence: CA)
  Receive Date: 20220518
  Receipt Date: 20220602
  Transmission Date: 20220721
  Serious: Yes (Other)
  Sender: FDA-Public Use
  Company Number: CA-PFIZER INC-202200676171

PATIENT
  Age: 54 Year
  Sex: Female

DRUGS (1)
  1. SOMATROPIN [Suspect]
     Active Substance: SOMATROPIN
     Indication: Growth hormone deficiency
     Dosage: 900 UG, 1X/DAY (SEVEN TIMES IN A WEEK)
     Route: 058

REACTIONS (1)
  - Ovarian adenoma [Recovered/Resolved]

NARRATIVE: CASE EVENT DATE: 20201201
